FAERS Safety Report 8756242 (Version 2)
Quarter: 2013Q1

REPORT INFORMATION
  Report Type: Spontaneous
  Country: US (occurrence: None)
  Receive Date: 20120814
  Receipt Date: 20121108
  Transmission Date: 20140127
  Serious: Yes (Life-Threatening, Disabling, Other)
  Sender: FDA-Public Use
  Company Number: 2012MA009915

PATIENT
  Sex: Female

DRUGS (2)
  1. METOCLOPRAMIDE [Suspect]
     Indication: ABDOMINAL DISTENSION
  2. METOCLOPRAMIDE [Suspect]
     Indication: DYSPEPSIA

REACTIONS (17)
  - Toxicity to various agents [None]
  - Incorrect drug administration duration [None]
  - Multiple injuries [None]
  - Nervous system disorder [None]
  - Extrapyramidal disorder [None]
  - Tardive dyskinesia [None]
  - Deformity [None]
  - Activities of daily living impaired [None]
  - Fear [None]
  - Pain [None]
  - Anxiety [None]
  - Anhedonia [None]
  - Dystonia [None]
  - Extrapyramidal disorder [None]
  - Family stress [None]
  - Emotional disorder [None]
  - Emotional distress [None]
